FAERS Safety Report 5886229-4 (Version None)
Quarter: 2008Q3

REPORT INFORMATION
  Report Type: 
  Country: None (occurrence: None)
  Receive Date: 20080917
  Receipt Date: 20080905
  Transmission Date: 20090109
  Serious: Yes (Hospitalization)
  Sender: FDA-Public Use
  Company Number: FR-ELI_LILLY_AND_COMPANY-FR200807006076

PATIENT
  Age: 72 Year
  Sex: Female
  Weight: 101 kg

DRUGS (17)
  1. FORTEO [Suspect]
     Indication: OSTEOPOROSIS
     Dosage: 20 UG, UNKNOWN
     Route: 058
     Dates: start: 20070501
  2. AUGMENTIN '125' [Concomitant]
     Dosage: 3 D/F SACHETS, DAILY (1/D)
     Route: 065
  3. PROZAC [Concomitant]
     Dosage: 20 MG, DAILY (1/D)
     Route: 048
  4. ENBREL [Concomitant]
     Indication: RHEUMATOID ARTHRITIS
     Dosage: 1 D/F, DAILY (1/D)
     Route: 058
     Dates: start: 20070101, end: 20080701
  5. FLECAINE [Concomitant]
     Dosage: 150 MG, DAILY (1/D)
     Route: 048
  6. LASIX [Concomitant]
     Dosage: 40 MG, EVERY 3 HRS (8 TIMES DAILY)
     Route: 048
  7. LEVOTHYROX [Concomitant]
     Dosage: 100 UG, DAILY (1/D)
     Route: 048
  8. LEVOTHYROX [Concomitant]
     Dosage: 112 UG, DAILY (1/D)
     Route: 048
  9. NEXIUM [Concomitant]
     Dosage: 40 MG, DAILY (1/D)
     Route: 048
  10. ALDACTONE [Concomitant]
     Dosage: 75 MG, 2/D
     Route: 048
  11. ALDACTONE [Concomitant]
     Dosage: 50 MG, DAILY (1/D)
     Route: 065
  12. HYPERIUM [Concomitant]
     Dosage: 1 D/F, 3/D
     Route: 048
  13. ZYLORIC [Concomitant]
     Dosage: 200 MG, DAILY (1/D)
     Route: 048
  14. GAVISCON                                /GFR/ [Concomitant]
     Dosage: 2 D/F, DAILY (1/D)
     Route: 048
  15. LEXOMIL [Concomitant]
     Dosage: 0.5 D/F, DAILY (1/D)
     Route: 048
  16. RIVOTRIL [Concomitant]
     Dosage: 8 D/F, DAILY (1/D)
     Route: 048
  17. TOPALGIC [Concomitant]
     Dosage: 200 MG, DAILY (1/D)
     Route: 048

REACTIONS (7)
  - CARDIAC FAILURE [None]
  - HAEMORRHOIDAL HAEMORRHAGE [None]
  - HYPOTHYROIDISM [None]
  - LIMB INJURY [None]
  - LYMPHOEDEMA [None]
  - OEDEMA PERIPHERAL [None]
  - PYREXIA [None]
